FAERS Safety Report 7642247-7 (Version None)
Quarter: 2011Q3

REPORT INFORMATION
  Report Type: 
  Country: None (occurrence: None)
  Receive Date: 20110728
  Receipt Date: 20110722
  Transmission Date: 20111222
  Serious: Yes (Death, Hospitalization)
  Sender: FDA-Public Use
  Company Number: PHHO2010MX13465

PATIENT
  Sex: Male
  Weight: 55 kg

DRUGS (2)
  1. AFINITOR [Suspect]
     Dosage: 5 MG, DAILY
     Route: 048
     Dates: start: 20100813, end: 20100830
  2. AFINITOR [Suspect]
     Indication: METASTATIC RENAL CELL CARCINOMA
     Dosage: 10 MG, UNK
     Route: 048
     Dates: start: 20100721, end: 20100725

REACTIONS (16)
  - URINE OUTPUT DECREASED [None]
  - ASTHENIA [None]
  - AZOTAEMIA [None]
  - DIARRHOEA [None]
  - PYREXIA [None]
  - DYSURIA [None]
  - OEDEMA [None]
  - ANAEMIA [None]
  - RENAL FAILURE [None]
  - LETHARGY [None]
  - CONFUSIONAL STATE [None]
  - DEHYDRATION [None]
  - NEOPLASM MALIGNANT [None]
  - MULTI-ORGAN FAILURE [None]
  - ELECTROLYTE IMBALANCE [None]
  - GENERAL PHYSICAL HEALTH DETERIORATION [None]
